FAERS Safety Report 23344024 (Version 1)
Quarter: 2023Q4

REPORT INFORMATION
  Report Type: Spontaneous
  Country: US (occurrence: US)
  Receive Date: 20231227
  Receipt Date: 20231227
  Transmission Date: 20240110
  Serious: Yes (Hospitalization, Other)
  Sender: FDA-Public Use
  Company Number: US-BRISTOL-MYERS SQUIBB COMPANY-2023-187506

PATIENT
  Age: 68 Year
  Sex: Female
  Weight: 61.23 kg

DRUGS (6)
  1. ELIQUIS [Suspect]
     Active Substance: APIXABAN
     Indication: Product used for unknown indication
     Route: 048
  2. ELIQUIS [Suspect]
     Active Substance: APIXABAN
     Route: 048
  3. FARXIGA [Suspect]
     Active Substance: DAPAGLIFLOZIN PROPANEDIOL
     Indication: Product used for unknown indication
  4. SINGULAIR [Concomitant]
     Active Substance: MONTELUKAST SODIUM
     Indication: Product used for unknown indication
  5. OXYCODONE [Concomitant]
     Active Substance: OXYCODONE
     Indication: Product used for unknown indication
  6. WATER [Concomitant]
     Active Substance: WATER
     Indication: Product used for unknown indication

REACTIONS (37)
  - Contusion [Unknown]
  - Epistaxis [Unknown]
  - Rash [Unknown]
  - Anaemia [Unknown]
  - Pruritus [Unknown]
  - Confusional state [Unknown]
  - Dizziness [Unknown]
  - Depressed level of consciousness [Unknown]
  - Arthralgia [Unknown]
  - Swelling [Unknown]
  - Dysphagia [Unknown]
  - Headache [Unknown]
  - Nausea [Unknown]
  - Vomiting [Unknown]
  - Abdominal pain [Unknown]
  - Chest pain [Unknown]
  - Chest discomfort [Unknown]
  - Dyspnoea [Unknown]
  - Wheezing [Unknown]
  - Respiratory tract infection [Unknown]
  - Sinusitis [Unknown]
  - Oedema [Unknown]
  - Atrial fibrillation [Unknown]
  - Internal haemorrhage [Unknown]
  - Blood urine present [Unknown]
  - Haematochezia [Unknown]
  - Skin haemorrhage [Unknown]
  - Fatigue [Unknown]
  - Deep vein thrombosis [Unknown]
  - Fall [Unknown]
  - Renal pain [Unknown]
  - Bladder pain [Unknown]
  - Urinary incontinence [Unknown]
  - Dental caries [Unknown]
  - Body height decreased [Unknown]
  - Asthma [Unknown]
  - Urinary tract infection [Unknown]
